FAERS Safety Report 22736789 (Version 6)
Quarter: 2025Q4

REPORT INFORMATION
  Report Type: Report from Study
  Country: EU (occurrence: EU)
  Receive Date: 20230721
  Receipt Date: 20251208
  Transmission Date: 20260118
  Serious: Yes (Hospitalization, Disabling)
  Sender: NOVARTIS
  Company Number: EU-002147023-NVSC2022IT221052

PATIENT
  Age: 6 Year
  Sex: Male
  Weight: 42 kg

DRUGS (17)
  1. MEKINIST [Suspect]
     Active Substance: TRAMETINIB DIMETHYL SULFOXIDE
     Indication: Astrocytoma, low grade
     Dosage: 0.65 MG
     Route: 048
     Dates: start: 20220829, end: 20220928
  2. MEKINIST [Suspect]
     Active Substance: TRAMETINIB DIMETHYL SULFOXIDE
     Dosage: 0.4 MG
     Route: 048
     Dates: end: 20221023
  3. MEKINIST [Suspect]
     Active Substance: TRAMETINIB DIMETHYL SULFOXIDE
     Dosage: 0.325 MG (7.5 ML/DAY)
     Route: 048
     Dates: start: 20221024, end: 20230714
  4. MEKINIST [Suspect]
     Active Substance: TRAMETINIB DIMETHYL SULFOXIDE
     Dosage: 7.5 ML, QD
     Route: 048
     Dates: start: 20230721
  5. MEKINIST [Suspect]
     Active Substance: TRAMETINIB DIMETHYL SULFOXIDE
     Dosage: 0.375 MG, QD
     Route: 048
     Dates: end: 20230909
  6. MEKINIST [Suspect]
     Active Substance: TRAMETINIB DIMETHYL SULFOXIDE
     Dosage: 0.375 MG, QD
     Route: 048
     Dates: start: 20230921
  7. MEKINIST [Suspect]
     Active Substance: TRAMETINIB DIMETHYL SULFOXIDE
     Dosage: 1 MG, QD (LAST DOSE TAKEN PRIOR TO AE ON 23 NOV 2025) (2 TABLETS OF 0.5 MG ONCE A DAY)
     Route: 048
     Dates: end: 20251125
  8. MEKINIST [Suspect]
     Active Substance: TRAMETINIB DIMETHYL SULFOXIDE
     Dosage: 0.5 MG, QD
     Route: 048
  9. TRIPTORELIN [Concomitant]
     Active Substance: TRIPTORELIN
     Indication: Precocious puberty
     Dosage: UNK
     Route: 065
  10. DESMOPRESSIN [Concomitant]
     Active Substance: DESMOPRESSIN
     Indication: Hypopituitarism
     Dosage: 120 UG BID (60 MCG AT 8 A.M.+ 60 MCG AT 8 P.M)
     Route: 048
     Dates: start: 20181205, end: 20251125
  11. DESMOPRESSIN [Concomitant]
     Active Substance: DESMOPRESSIN
     Indication: Diabetes insipidus
  12. NORVASC [Concomitant]
     Active Substance: AMLODIPINE BESYLATE
     Indication: Product used for unknown indication
     Dosage: 2.5 MG, QD
     Route: 065
  13. Decapeptyl [Concomitant]
     Indication: Precocious puberty
     Dosage: 3.75 MG (EVERY 28 DAYS)
     Route: 065
  14. MINIRIN [Concomitant]
     Active Substance: DESMOPRESSIN ACETATE
     Indication: Product used for unknown indication
     Dosage: 60 UG, TID
     Route: 048
  15. Triptorelina [Concomitant]
     Indication: Precocious puberty
     Dosage: 3,75 MG OGNI 28 GIORNI
     Route: 030
     Dates: start: 20200611, end: 20251125
  16. Triptorelina [Concomitant]
     Indication: Precocious puberty
  17. VITAMIN D [Concomitant]
     Active Substance: VITAMIN D NOS
     Indication: Vitamin D deficiency
     Dosage: 10000 IU, QW (28 DROPS PER WEEK) DIBASE VIALS
     Route: 048
     Dates: start: 20240912, end: 20251125

REACTIONS (8)
  - Blood creatine phosphokinase increased [Recovered/Resolved with Sequelae]
  - Haematuria [Recovered/Resolved]
  - Red blood cells urine [Unknown]
  - Hypervolaemia [Unknown]
  - Blood creatine phosphokinase increased [Unknown]
  - Cheilitis [Recovered/Resolved with Sequelae]
  - Stomatitis [Recovered/Resolved with Sequelae]
  - Hypertension [Recovered/Resolved]

NARRATIVE: CASE EVENT DATE: 20220927
